FAERS Safety Report 5851136-X (Version None)
Quarter: 2008Q3

REPORT INFORMATION
  Report Type: 
  Country: None (occurrence: None)
  Receive Date: 20080820
  Receipt Date: 20080814
  Transmission Date: 20090109
  Serious: Yes (Other)
  Sender: FDA-Public Use
  Company Number: B0533065A

PATIENT
  Age: 70 Year
  Sex: Female

DRUGS (1)
  1. SERETIDE [Suspect]
     Indication: DRUG USE FOR UNKNOWN INDICATION
     Dosage: 250MCG UNKNOWN
     Route: 055

REACTIONS (2)
  - ADRENAL SUPPRESSION [None]
  - BLOOD SODIUM DECREASED [None]
